FAERS Safety Report 15427234 (Version 15)
Quarter: 2022Q3

REPORT INFORMATION
  Report Type: Spontaneous
  Country: US (occurrence: US)
  Receive Date: 20180925
  Receipt Date: 20220801
  Transmission Date: 20221027
  Serious: Yes (Hospitalization, Other)
  Sender: FDA-Public Use
  Company Number: PHHY2018US101392

PATIENT
  Age: 4 Year
  Sex: Female
  Weight: 16.5 kg

DRUGS (22)
  1. CYCLOSPORINE [Suspect]
     Active Substance: CYCLOSPORINE
     Indication: Juvenile idiopathic arthritis
     Dosage: 25 MG
     Route: 065
     Dates: start: 20180118, end: 20180202
  2. CYCLOSPORINE [Suspect]
     Active Substance: CYCLOSPORINE
     Dosage: 50 MG
     Route: 065
     Dates: start: 20180202, end: 201811
  3. CYCLOSPORINE [Suspect]
     Active Substance: CYCLOSPORINE
     Dosage: UNK
     Route: 048
     Dates: start: 20180820
  4. CYCLOSPORINE [Suspect]
     Active Substance: CYCLOSPORINE
     Dosage: UNK
     Route: 048
     Dates: start: 20181105
  5. CYCLOSPORINE [Suspect]
     Active Substance: CYCLOSPORINE
     Dosage: 75 MG
     Route: 065
     Dates: start: 201812
  6. METHOTREXATE [Suspect]
     Active Substance: METHOTREXATE
     Indication: Juvenile idiopathic arthritis
     Dosage: 10 MG
     Route: 065
     Dates: start: 20180830, end: 20181107
  7. METHOTREXATE [Suspect]
     Active Substance: METHOTREXATE
     Dosage: UNK
     Route: 065
     Dates: start: 20181021
  8. METHOTREXATE [Suspect]
     Active Substance: METHOTREXATE
     Dosage: 15 MG
     Route: 065
     Dates: start: 20181108, end: 201811
  9. METHOTREXATE [Suspect]
     Active Substance: METHOTREXATE
     Dosage: 10 MG
     Route: 065
     Dates: start: 201812
  10. NAPROXEN [Suspect]
     Active Substance: NAPROXEN
     Indication: Juvenile idiopathic arthritis
     Dosage: 125 MG
     Route: 065
     Dates: start: 201709, end: 20171005
  11. NAPROXEN [Suspect]
     Active Substance: NAPROXEN
     Dosage: 150 MG
     Route: 065
     Dates: start: 20171023, end: 20180820
  12. KINERET [Suspect]
     Active Substance: ANAKINRA
     Indication: Juvenile idiopathic arthritis
     Dosage: 50 MG
     Route: 065
     Dates: start: 20171031, end: 20171113
  13. KINERET [Suspect]
     Active Substance: ANAKINRA
     Dosage: 100 MG
     Route: 065
     Dates: start: 20171113, end: 20171228
  14. KINERET [Suspect]
     Active Substance: ANAKINRA
     Dosage: 200 MG
     Route: 065
     Dates: start: 20180201
  15. KINERET [Suspect]
     Active Substance: ANAKINRA
     Dosage: UNK
     Route: 065
     Dates: start: 20180820
  16. KINERET [Suspect]
     Active Substance: ANAKINRA
     Dosage: UNK
     Route: 065
     Dates: start: 201811
  17. ACTEMRA [Suspect]
     Active Substance: TOCILIZUMAB
     Indication: Juvenile idiopathic arthritis
     Dosage: 200 MG
     Route: 065
     Dates: start: 20171228, end: 20180201
  18. ACETAMINOPHEN [Concomitant]
     Active Substance: ACETAMINOPHEN
     Indication: Juvenile idiopathic arthritis
     Dosage: 144 MG
     Route: 065
     Dates: start: 20171004, end: 20180824
  19. FAMOTIDINE [Concomitant]
     Active Substance: FAMOTIDINE
     Indication: Juvenile idiopathic arthritis
     Dosage: 7 MG
     Route: 065
     Dates: start: 20171006
  20. HYDROXYZINE HYDROCHLORIDE [Concomitant]
     Active Substance: HYDROXYZINE HYDROCHLORIDE
     Indication: Juvenile idiopathic arthritis
     Dosage: 10 MG
     Route: 065
     Dates: start: 201709, end: 20171010
  21. IBUPROFEN [Concomitant]
     Active Substance: IBUPROFEN
     Indication: Juvenile idiopathic arthritis
     Dosage: 150 MG
     Route: 065
     Dates: start: 201709, end: 20171005
  22. INDOMETHACIN [Concomitant]
     Active Substance: INDOMETHACIN
     Indication: Juvenile idiopathic arthritis
     Dosage: 15 MG
     Route: 065
     Dates: start: 20171005, end: 20171010

REACTIONS (5)
  - Still^s disease [Recovered/Resolved]
  - Joint swelling [Recovering/Resolving]
  - Pyrexia [Recovered/Resolved]
  - Abdominal pain lower [Recovered/Resolved]
  - Still^s disease [Recovered/Resolved]

NARRATIVE: CASE EVENT DATE: 20180820
